FAERS Safety Report 5612072-7 (Version None)
Quarter: 2008Q1

REPORT INFORMATION
  Report Type: 
  Country: None (occurrence: None)
  Receive Date: 20080131
  Receipt Date: 20080131
  Transmission Date: 20080703
  Serious: Yes (Other)
  Sender: FDA-Public Use
  Company Number: None

PATIENT
  Age: 32 Year
  Sex: Female
  Weight: 63.5036 kg

DRUGS (3)
  1. CEFUROXIME [Suspect]
     Indication: BRONCHITIS
     Dosage: 1 TABLET BY MOUTH EVERY 12 HOURS PO
     Route: 048
     Dates: start: 20080129, end: 20080130
  2. CEFUROXIME [Suspect]
     Indication: PHARYNGITIS
     Dosage: 1 TABLET BY MOUTH EVERY 12 HOURS PO
     Route: 048
     Dates: start: 20080129, end: 20080130
  3. CEFUROXIME [Suspect]
     Indication: SINUSITIS
     Dosage: 1 TABLET BY MOUTH EVERY 12 HOURS PO
     Route: 048
     Dates: start: 20080129, end: 20080130

REACTIONS (14)
  - ASTHENIA [None]
  - COUGH [None]
  - DECREASED APPETITE [None]
  - DEHYDRATION [None]
  - HEADACHE [None]
  - MALAISE [None]
  - NAUSEA [None]
  - ORAL INTAKE REDUCED [None]
  - PAIN [None]
  - RASH ERYTHEMATOUS [None]
  - SKIN DISCOLOURATION [None]
  - URTICARIA [None]
  - VOMITING [None]
  - WHEEZING [None]
